FAERS Safety Report 19326541 (Version 3)
Quarter: 2021Q3

REPORT INFORMATION
  Report Type: Report from Study
  Country: US (occurrence: US)
  Receive Date: 20210528
  Receipt Date: 20210813
  Transmission Date: 20211014
  Serious: Yes (Other)
  Sender: FDA-Public Use
  Company Number: US-GW PHARMA-202105USGW02524

PATIENT

DRUGS (2)
  1. EPIDIOLEX [Suspect]
     Active Substance: CANNABIDIOL
     Indication: PRODUCT USED FOR UNKNOWN INDICATION
     Dosage: 16.34 MG/KG/DAY, 640 MILLIGRAM, BID
     Route: 048
  2. EPIDIOLEX [Suspect]
     Active Substance: CANNABIDIOL
     Dosage: 17.36 MG/KG/DAY, 680 MILLIGRAM, BID (PRESCRIBED DOSE WAS 700 MG, BID)
     Route: 048

REACTIONS (5)
  - Seizure [Unknown]
  - Incorrect dose administered [Unknown]
  - Insomnia [Unknown]
  - Product supply issue [Unknown]
  - Treatment noncompliance [Unknown]

NARRATIVE: CASE EVENT DATE: 2021
